FAERS Safety Report 11484648 (Version 1)
Quarter: 2015Q3

REPORT INFORMATION
  Report Type: Spontaneous
  Country: None (occurrence: None)
  Receive Date: 20150909
  Receipt Date: 20150909
  Transmission Date: 20151125
  Serious: Yes (Death, Life-Threatening, Hospitalization)
  Sender: FDA-Public Use
  Company Number: None

PATIENT
  Age: 72 Year
  Sex: Male
  Weight: 47.63 kg

DRUGS (1)
  1. INLYTA [Suspect]
     Active Substance: AXITINIB
     Indication: RENAL CELL CARCINOMA
     Route: 048
     Dates: start: 20150115, end: 20150618

REACTIONS (8)
  - Abasia [None]
  - Aphonia [None]
  - Peripheral swelling [None]
  - Asthenia [None]
  - Weight decreased [None]
  - Vision blurred [None]
  - Impaired healing [None]
  - Hypersomnia [None]

NARRATIVE: CASE EVENT DATE: 201501
